FAERS Safety Report 9634012 (Version 4)
Quarter: 2013Q4

REPORT INFORMATION
  Report Type: Spontaneous
  Country: US (occurrence: US)
  Receive Date: 20131021
  Receipt Date: 20131223
  Transmission Date: 20140711
  Serious: Yes (Hospitalization, Other)
  Sender: FDA-Public Use
  Company Number: US-BAXTER-2013BAX040999

PATIENT
  Age: 24 Year
  Sex: Male

DRUGS (6)
  1. FEIBA NF [Suspect]
     Indication: HAEMORRHAGE
     Route: 042
     Dates: end: 20131016
  2. FEIBA NF [Suspect]
     Indication: HAEMOPHILIA A WITH ANTI FACTOR VIII
     Route: 042
  3. NORCO [Concomitant]
     Indication: PAIN
     Dosage: 5/325
     Route: 048
  4. FERROUS SULFATE [Concomitant]
     Indication: PRODUCT USED FOR UNKNOWN INDICATION
     Route: 048
  5. XANAX [Concomitant]
     Indication: PRODUCT USED FOR UNKNOWN INDICATION
     Route: 048
  6. ZOLOFT [Concomitant]
     Indication: PRODUCT USED FOR UNKNOWN INDICATION
     Route: 048

REACTIONS (10)
  - Drug ineffective [Recovered/Resolved]
  - Haemorrhagic disorder [Not Recovered/Not Resolved]
  - Haemorrhagic anaemia [Unknown]
  - Hypotension [Unknown]
  - Haemarthrosis [Unknown]
  - Haemorrhage [Unknown]
  - Haemarthrosis [Unknown]
  - Skin lesion [Unknown]
  - Haemorrhage [Unknown]
  - Treatment noncompliance [Unknown]
